FAERS Safety Report 25092805 (Version 1)
Quarter: 2025Q1

REPORT INFORMATION
  Report Type: Spontaneous
  Country: US (occurrence: US)
  Receive Date: 20250319
  Receipt Date: 20250319
  Transmission Date: 20250409
  Serious: No
  Sender: ALEXION PHARMACEUTICALS
  Company Number: US-ASTRAZENECA-202503USA013103US

PATIENT
  Age: 51 Year

DRUGS (2)
  1. CRESTOR [Suspect]
     Active Substance: ROSUVASTATIN CALCIUM
     Indication: Product used for unknown indication
     Route: 065
  2. NIROGACESTAT [Suspect]
     Active Substance: NIROGACESTAT
     Indication: Product used for unknown indication
     Dosage: 100 MILLIGRAM, BID

REACTIONS (6)
  - Alopecia [Unknown]
  - Faeces soft [Unknown]
  - Drug interaction [Unknown]
  - Urticaria [Unknown]
  - Stress [Unknown]
  - Diarrhoea [Unknown]
